FAERS Safety Report 23185555 (Version 1)
Quarter: 2023Q4

REPORT INFORMATION
  Report Type: Spontaneous
  Country: US (occurrence: None)
  Receive Date: 20231114
  Receipt Date: 20231114
  Transmission Date: 20240110
  Serious: Yes (Other)
  Sender: FDA-Public Use
  Company Number: None

PATIENT
  Age: 38 Year
  Sex: Female
  Weight: 74.7 kg

DRUGS (2)
  1. MONISTAT [Suspect]
     Active Substance: MICONAZOLE NITRATE
     Indication: Fungal infection
     Dates: start: 20231103, end: 20231103
  2. SYNTHROID [Concomitant]
     Active Substance: LEVOTHYROXINE SODIUM

REACTIONS (8)
  - Application site pain [None]
  - Application site haemorrhage [None]
  - Vulvovaginal swelling [None]
  - Localised oedema [None]
  - Vulvovaginal erythema [None]
  - Vulvovaginal pain [None]
  - Crying [None]
  - Insomnia [None]

NARRATIVE: CASE EVENT DATE: 20231113
